FAERS Safety Report 10947534 (Version 1)
Quarter: 2015Q1

REPORT INFORMATION
  Report Type: Spontaneous
  Country: US (occurrence: US)
  Receive Date: 20150323
  Receipt Date: 20150323
  Transmission Date: 20150721
  Serious: No
  Sender: FDA-Public Use
  Company Number: US-BAUSCH-SYM-2014-15095

PATIENT
  Sex: Male

DRUGS (2)
  1. XENAZINE [Suspect]
     Active Substance: TETRABENAZINE
     Indication: DYSKINESIA
  2. XENAZINE [Suspect]
     Active Substance: TETRABENAZINE
     Indication: HUNTINGTON^S DISEASE
     Dosage: 1 TABLET, 3X DAILY
     Route: 048
     Dates: start: 20110812

REACTIONS (3)
  - Drooling [Not Recovered/Not Resolved]
  - Vomiting [Not Recovered/Not Resolved]
  - Dysarthria [Not Recovered/Not Resolved]
